FAERS Safety Report 21940504 (Version 1)
Quarter: 2023Q1

REPORT INFORMATION
  Report Type: Report from Study
  Country: US (occurrence: US)
  Receive Date: 20230201
  Receipt Date: 20230201
  Transmission Date: 20230418
  Serious: No
  Sender: FDA-Public Use
  Company Number: US-EXELIXIS-CABO-22051490

PATIENT
  Age: 49 Year
  Sex: Female

DRUGS (2)
  1. CABOMETYX [Suspect]
     Active Substance: CABOZANTINIB S-MALATE
     Indication: Cervix carcinoma
     Dosage: 60 MG, QD
     Dates: start: 20220331
  2. TEPMETKO [Concomitant]
     Active Substance: TEPOTINIB HYDROCHLORIDE
     Indication: Cervix carcinoma
     Dosage: UNK
     Dates: start: 20220414

REACTIONS (2)
  - Malaise [Not Recovered/Not Resolved]
  - Off label use [Unknown]

NARRATIVE: CASE EVENT DATE: 20220428
